FAERS Safety Report 25934148 (Version 1)
Quarter: 2025Q4

REPORT INFORMATION
  Report Type: Spontaneous
  Country: EU (occurrence: EU)
  Receive Date: 20251017
  Receipt Date: 20251017
  Transmission Date: 20260118
  Serious: Yes (Other)
  Sender: AUROBINDO
  Company Number: EU-MYLANLABS-2025M1082291

PATIENT
  Age: 48 Year
  Sex: Male

DRUGS (3)
  1. ATORVASTATIN [Suspect]
     Active Substance: ATORVASTATIN
     Indication: Product used for unknown indication
     Dosage: 10 MILLIGRAM, QD (10 MG PER DAY)
     Route: 065
     Dates: start: 202408
  2. LORLATINIB [Suspect]
     Active Substance: LORLATINIB
     Indication: Non-small cell lung cancer
     Dosage: 100 MILLIGRAM, QD (100 MG PER DAY)
     Route: 065
     Dates: start: 202408
  3. LORLATINIB [Suspect]
     Active Substance: LORLATINIB
     Indication: Anaplastic lymphoma kinase gene mutation

REACTIONS (4)
  - Blood cholesterol increased [Unknown]
  - Euphoric mood [Unknown]
  - Blood triglycerides increased [Unknown]
  - Irritability [Unknown]

NARRATIVE: CASE EVENT DATE: 20250801
